FAERS Safety Report 7936080-6 (Version None)
Quarter: 2011Q4

REPORT INFORMATION
  Report Type: 
  Country: None (occurrence: None)
  Receive Date: 20111123
  Receipt Date: 20111117
  Transmission Date: 20120403
  Serious: Yes (Hospitalization)
  Sender: FDA-Public Use
  Company Number: US-SHIRE-ALL1-2011-04541

PATIENT
  Sex: Female
  Weight: 81.633 kg

DRUGS (2)
  1. UNSPECIFIED SEIZURE MEDICATION [Concomitant]
     Indication: CONVULSION
     Dosage: UNK, UNKNOWN
     Route: 048
  2. VYVANSE [Suspect]
     Indication: ATTENTION DEFICIT/HYPERACTIVITY DISORDER
     Dosage: 70 MG, 1X/DAY:QD
     Route: 048
     Dates: start: 20081201

REACTIONS (2)
  - DELUSION [None]
  - PSYCHIATRIC SYMPTOM [None]
